FAERS Safety Report 9486011 (Version 1)
Quarter: 2013Q3

REPORT INFORMATION
  Report Type: Spontaneous
  Country: US (occurrence: None)
  Receive Date: 20130826
  Receipt Date: 20130826
  Transmission Date: 20140515
  Serious: Yes (Hospitalization)
  Sender: FDA-Public Use
  Company Number: SYM-2013-04261

PATIENT
  Age: 76 Year
  Sex: Female

DRUGS (2)
  1. XENAZINE (TETRABENAZINE) (12.5 MILLIGRAM, TABLET) (TETRABENAZINE) [Suspect]
     Indication: DYSKINESIA
     Route: 048
     Dates: start: 20101002, end: 20130523
  2. ALCOHOL (ETHANOL) [Suspect]
     Indication: PRODUCT USED FOR UNKNOWN INDICATION

REACTIONS (1)
  - Hospitalisation [None]
